FAERS Safety Report 5216019-7 (Version None)
Quarter: 2007Q1

REPORT INFORMATION
  Report Type: 
  Country: None (occurrence: None)
  Receive Date: 20061122
  Receipt Date: 20060505
  Transmission Date: 20070707
  Serious: Yes (Other)
  Sender: FDA-Public Use
  Company Number: 2006039299

PATIENT
  Age: 79 Year
  Sex: Female
  Weight: 68.9467 kg

DRUGS (6)
  1. LIPITOR [Suspect]
     Indication: HYPERLIPIDAEMIA
     Dosage: 40 MG (40 MG, 1 IN 1 D)
     Dates: start: 20051101, end: 20060201
  2. LISINOPRIL AND HYDROCHLOROTHIAZIDE [Concomitant]
  3. GLUCOVANCE [Concomitant]
  4. TOPROL-XL [Concomitant]
  5. CALCIUM (CALCIUM) [Concomitant]
  6. ASPIRIN [Concomitant]

REACTIONS (2)
  - BLOOD CREATINE PHOSPHOKINASE INCREASED [None]
  - MYOPATHY [None]
